FAERS Safety Report 8134906-7 (Version None)
Quarter: 2012Q1

REPORT INFORMATION
  Report Type: 
  Country: None (occurrence: None)
  Receive Date: 20120214
  Receipt Date: 20120207
  Transmission Date: 20120608
  Serious: No
  Sender: FDA-Public Use
  Company Number: US-PFIZER INC-2012034516

PATIENT
  Sex: Female
  Weight: 65.8 kg

DRUGS (2)
  1. LO/OVRAL-28 [Suspect]
     Indication: OVARIAN CYST
  2. LO/OVRAL-28 [Suspect]
     Indication: OFF LABEL USE
     Dosage: ONE TABLET DAILY

REACTIONS (1)
  - HEADACHE [None]
